FAERS Safety Report 8219075-7 (Version None)
Quarter: 2012Q1

REPORT INFORMATION
  Report Type: 
  Country: None (occurrence: None)
  Receive Date: 20120307
  Receipt Date: 20111102
  Transmission Date: 20120608
  Serious: Yes (Disabling)
  Sender: FDA-Public Use
  Company Number: 163-21660-11072064

PATIENT
  Age: 57 Year
  Sex: Female

DRUGS (1)
  1. ABRAXANE [Suspect]
     Indication: BREAST CANCER
     Dosage: 470 MG, EVERY 21 DAYS, IV
     Route: 042
     Dates: start: 20110211, end: 20110708

REACTIONS (2)
  - DISEASE PROGRESSION [None]
  - BREAST CANCER [None]
